FAERS Safety Report 5734556-3 (Version None)
Quarter: 2008Q2

REPORT INFORMATION
  Report Type: 
  Country: None (occurrence: None)
  Receive Date: 20080508
  Receipt Date: 20080508
  Transmission Date: 20081010
  Serious: No
  Sender: FDA-Public Use
  Company Number: None

PATIENT
  Age: 45 Year
  Sex: Male

DRUGS (1)
  1. VANCOMYCIN [Suspect]
     Dosage: 1 GRAM
     Dates: start: 20071104, end: 20071104

REACTIONS (2)
  - ERYTHEMA [None]
  - PRURITUS [None]
